FAERS Safety Report 7803584-6 (Version None)
Quarter: 2011Q4

REPORT INFORMATION
  Report Type: 
  Country: None (occurrence: None)
  Receive Date: 20111009
  Receipt Date: 20110926
  Transmission Date: 20120403
  Serious: Yes (Death, Hospitalization)
  Sender: FDA-Public Use
  Company Number: US-ELI_LILLY_AND_COMPANY-US201102001636

PATIENT
  Sex: Male

DRUGS (2)
  1. FORTEO [Suspect]
     Dosage: 20 UG, QD
  2. FORTEO [Suspect]
     Indication: OSTEOPOROSIS
     Dosage: 20 UG, DAILY (1/D)

REACTIONS (9)
  - DEATH [None]
  - DYSPHAGIA [None]
  - PAIN IN EXTREMITY [None]
  - LIMB INJURY [None]
  - VENOUS OPERATION [None]
  - PNEUMONIA [None]
  - POST PROCEDURAL COMPLICATION [None]
  - MASS [None]
  - URINARY TRACT INFECTION [None]
